FAERS Safety Report 4725871-0 (Version None)
Quarter: 2005Q3

REPORT INFORMATION
  Report Type: 
  Country: None (occurrence: None)
  Receive Date: 20050725
  Receipt Date: 20050725
  Transmission Date: 20060218
  Serious: Yes (Life-Threatening)
  Sender: FDA-Public Use
  Company Number: None

PATIENT
  Age: 57 Year
  Sex: Female
  Weight: 108.8633 kg

DRUGS (1)
  1. NORVASC [Suspect]
     Indication: BLOOD PRESSURE MANAGEMENT
     Dosage: ONE DAILY ORAL
     Route: 048

REACTIONS (4)
  - ASTHMA [None]
  - CHOKING [None]
  - PHARYNGOLARYNGEAL PAIN [None]
  - THROAT IRRITATION [None]
